FAERS Safety Report 15288066 (Version 1)
Quarter: 2018Q4

REPORT INFORMATION
  Report Type: Spontaneous
  Country: US (occurrence: US)
  Receive Date: 20180817
  Receipt Date: 20180817
  Transmission Date: 20190204
  Serious: No
  Sender: FDA-Public Use
  Company Number: US-TEVA-2018-US-943403

PATIENT
  Age: 47 Year
  Sex: Male

DRUGS (2)
  1. MICONAZOLE 3 COMBO [Suspect]
     Active Substance: MICONAZOLE
     Indication: FUNGAL INFECTION
     Route: 065
     Dates: start: 20180731, end: 20180802
  2. MICONAZOLE 3 COMBO [Suspect]
     Active Substance: MICONAZOLE
     Route: 065

REACTIONS (1)
  - Drug ineffective [Unknown]

NARRATIVE: CASE EVENT DATE: 20180731
